FAERS Safety Report 4952901-3 (Version None)
Quarter: 2006Q1

REPORT INFORMATION
  Report Type: 
  Country: None (occurrence: None)
  Receive Date: 20060320
  Receipt Date: 20060315
  Transmission Date: 20060701
  Serious: Yes (Other)
  Sender: FDA-Public Use
  Company Number: 2005014922

PATIENT
  Age: 73 Year
  Sex: Female
  Weight: 107.0489 kg

DRUGS (6)
  1. DETROL LA [Suspect]
     Indication: HYPERTONIC BLADDER
     Dosage: 2 MG (2 MG 1 IN 1 D) ORAL
     Route: 048
     Dates: start: 20000203
  2. ZOCOR [Concomitant]
  3. BENICAR [Concomitant]
  4. CELEBREX [Concomitant]
  5. ZETIA [Concomitant]
  6. ISORDIL [Concomitant]

REACTIONS (1)
  - DRUG INEFFECTIVE [None]
